FAERS Safety Report 16787951 (Version 4)
Quarter: 2020Q2

REPORT INFORMATION
  Report Type: Report from Study
  Country: US (occurrence: US)
  Receive Date: 20190909
  Receipt Date: 20200611
  Transmission Date: 20200713
  Serious: Yes (Hospitalization, Other)
  Sender: FDA-Public Use
  Company Number: US-ACTELION-A-US2019-195244

PATIENT
  Age: 71 Year
  Sex: Female
  Weight: 55.33 kg

DRUGS (3)
  1. OPSUMIT [Suspect]
     Active Substance: MACITENTAN
     Indication: PULMONARY ARTERIAL HYPERTENSION
     Dosage: 10 MG, QD
     Route: 048
  2. TADALAFIL. [Concomitant]
     Active Substance: TADALAFIL
  3. VELETRI [Suspect]
     Active Substance: EPOPROSTENOL
     Indication: PULMONARY ARTERIAL HYPERTENSION
     Dosage: 57 NG/KG, PER MIN
     Route: 042

REACTIONS (7)
  - Weight decreased [Unknown]
  - Cholelithiasis [Unknown]
  - Pleural effusion [Unknown]
  - Hospitalisation [Unknown]
  - Hypotension [Not Recovered/Not Resolved]
  - Lung carcinoma cell type unspecified stage IV [Unknown]
  - Chemotherapy [Unknown]

NARRATIVE: CASE EVENT DATE: 20190827
